FAERS Safety Report 4499248-X (Version None)
Quarter: 2004Q4

REPORT INFORMATION
  Report Type: 
  Country: None (occurrence: None)
  Receive Date: 20041111
  Receipt Date: 20041105
  Transmission Date: 20050328
  Serious: Yes (Hospitalization)
  Sender: FDA-Public Use
  Company Number: US-BRISTOL-MYERS SQUIBB COMPANY-12756268

PATIENT
  Age: 63 Year
  Sex: Male

DRUGS (2)
  1. CETUXIMAB [Suspect]
     Indication: COLORECTAL CANCER
     Dosage: TOTAL DOSE ADMINISTERED THIS COURSE: 1695 MG
     Route: 042
     Dates: start: 20041028, end: 20041028
  2. BEVACIZUMAB [Suspect]
     Indication: COLORECTAL CANCER
     Dosage: TOTAL DOSE ADMINISTERED THIS COURSE: 2520 MG
     Route: 042
     Dates: start: 20041028, end: 20041028

REACTIONS (3)
  - DUODENAL ULCER HAEMORRHAGE [None]
  - GASTROINTESTINAL HAEMORRHAGE [None]
  - SYNCOPE [None]
